FAERS Safety Report 19279648 (Version 2)
Quarter: 2021Q2

REPORT INFORMATION
  Report Type: Spontaneous
  Country: US (occurrence: US)
  Receive Date: 20210520
  Receipt Date: 20210604
  Transmission Date: 20210717
  Serious: No
  Sender: FDA-Public Use
  Company Number: US-JNJFOC-20210522940

PATIENT
  Age: 9 Year
  Sex: Male
  Weight: 63.56 kg

DRUGS (3)
  1. NADALOL [Concomitant]
     Indication: PRODUCT USED FOR UNKNOWN INDICATION
  2. PREDNISONE. [Concomitant]
     Active Substance: PREDNISONE
  3. REMICADE [Suspect]
     Active Substance: INFLIXIMAB
     Indication: PRODUCT USED FOR UNKNOWN INDICATION
     Route: 042

REACTIONS (8)
  - Rash [Unknown]
  - Blood pressure increased [Unknown]
  - Dyspnoea [Unknown]
  - Headache [Unknown]
  - Arthralgia [Unknown]
  - Abdominal pain upper [Unknown]
  - Chest pain [Unknown]
  - Diarrhoea [Unknown]
